FAERS Safety Report 23935551 (Version 1)
Quarter: 2024Q2

REPORT INFORMATION
  Report Type: Spontaneous
  Country: US (occurrence: US)
  Receive Date: 20240604
  Receipt Date: 20240604
  Transmission Date: 20240716
  Serious: Yes (Hospitalization)
  Sender: FDA-Public Use
  Company Number: US-PRECISION DOSE, INC.-2024PRD00003

PATIENT
  Age: 50 Year
  Sex: Female

DRUGS (2)
  1. CHLORTHALIDONE [Suspect]
     Active Substance: CHLORTHALIDONE
     Indication: Hypertension
  2. ALCOHOL [Suspect]
     Active Substance: ALCOHOL

REACTIONS (3)
  - Acute kidney injury [Recovered/Resolved]
  - Seizure [Unknown]
  - Hyponatraemia [Recovered/Resolved]
